FAERS Safety Report 17247417 (Version 2)
Quarter: 2020Q1

REPORT INFORMATION
  Report Type: Spontaneous
  Country: CZ (occurrence: CZ)
  Receive Date: 20200108
  Receipt Date: 20200110
  Transmission Date: 20200409
  Serious: Yes (Death, Hospitalization)
  Sender: FDA-Public Use
  Company Number: CZ-MYLANLABS-2020M1002036

PATIENT
  Age: 50 Year
  Sex: Male

DRUGS (3)
  1. RITUXIMAB. [Suspect]
     Active Substance: RITUXIMAB
     Indication: CHRONIC LYMPHOCYTIC LEUKAEMIA
     Dosage: UNK
     Route: 065
  2. GEMCITABINE. [Suspect]
     Active Substance: GEMCITABINE
     Indication: CHRONIC LYMPHOCYTIC LEUKAEMIA
     Dosage: UNK
     Route: 065
  3. DEXAMETHASONE. [Suspect]
     Active Substance: DEXAMETHASONE
     Indication: CHRONIC LYMPHOCYTIC LEUKAEMIA
     Dosage: UNK
     Route: 065

REACTIONS (4)
  - Richter^s syndrome [Fatal]
  - Chronic lymphocytic leukaemia transformation [Fatal]
  - Thrombocytopenia [Unknown]
  - Product use in unapproved indication [Unknown]
